FAERS Safety Report 7703541-4 (Version None)
Quarter: 2011Q3

REPORT INFORMATION
  Report Type: 
  Country: None (occurrence: None)
  Receive Date: 20110823
  Receipt Date: 20110808
  Transmission Date: 20111222
  Serious: Yes (Other)
  Sender: FDA-Public Use
  Company Number: PHHY2011BR72839

PATIENT
  Age: 61 Year
  Sex: Female

DRUGS (1)
  1. VOLTAREN [Suspect]
     Indication: PAIN
     Dosage: 50 MG, TWICE WEEKLY
     Route: 054

REACTIONS (3)
  - GASTROINTESTINAL INJURY [None]
  - GAIT DISTURBANCE [None]
  - PAIN [None]
